FAERS Safety Report 19445001 (Version 1)
Quarter: 2021Q2

REPORT INFORMATION
  Report Type: Spontaneous
  Country: US (occurrence: US)
  Receive Date: 20210622
  Receipt Date: 20210622
  Transmission Date: 20210717
  Serious: Yes (Hospitalization)
  Sender: FDA-Public Use
  Company Number: US-FARMAPROD-202106-0890

PATIENT
  Sex: Female

DRUGS (3)
  1. OXERVATE [Suspect]
     Active Substance: CENEGERMIN-BKBJ
     Dosage: 2?4 TIMES DAILY AS NEEDED
     Route: 047
     Dates: start: 20210125, end: 202103
  2. OXERVATE [Suspect]
     Active Substance: CENEGERMIN-BKBJ
     Dosage: 2?4 TIMES DAILY AS NEEDED
     Route: 047
     Dates: start: 20210405, end: 202105
  3. OXERVATE [Suspect]
     Active Substance: CENEGERMIN-BKBJ
     Indication: NEUROTROPHIC KERATOPATHY
     Dosage: 2?4 TIMES DAILY AS NEEDED
     Route: 047
     Dates: start: 20201130, end: 202101

REACTIONS (2)
  - Off label use [Unknown]
  - Hospitalisation [Unknown]
